FAERS Safety Report 24914592 (Version 1)
Quarter: 2025Q1

REPORT INFORMATION
  Report Type: Spontaneous
  Country: US (occurrence: US)
  Receive Date: 20250203
  Receipt Date: 20250203
  Transmission Date: 20250409
  Serious: No
  Sender: ROCHE
  Company Number: US-ROCHE-10000194003

PATIENT
  Age: 40 Year
  Sex: Female
  Weight: 78.47 kg

DRUGS (2)
  1. OCREVUS [Suspect]
     Active Substance: OCRELIZUMAB
     Indication: Relapsing multiple sclerosis
     Dosage: SUBSEQUENT DOSE ON 13-DEC-2024
     Route: 065
     Dates: start: 202406
  2. OCREVUS [Suspect]
     Active Substance: OCRELIZUMAB
     Route: 065
     Dates: start: 20241213

REACTIONS (1)
  - Fatigue [Unknown]
